FAERS Safety Report 26140079 (Version 1)
Quarter: 2025Q4

REPORT INFORMATION
  Report Type: Spontaneous
  Country: US (occurrence: None)
  Receive Date: 20251209
  Receipt Date: 20251209
  Transmission Date: 20260118
  Serious: Yes (Disabling)
  Sender: FDA-CTU
  Company Number: None

PATIENT
  Age: 37 Year
  Sex: Female

DRUGS (1)
  1. HARVONI [Suspect]
     Active Substance: LEDIPASVIR\SOFOSBUVIR
     Dates: start: 20170801, end: 20171001

REACTIONS (7)
  - Infertility [None]
  - Mitochondrial DNA depletion [None]
  - Fatigue [None]
  - Pain [None]
  - Arthralgia [None]
  - Feeling cold [None]
  - Hypermobility syndrome [None]

NARRATIVE: CASE EVENT DATE: 20170801
